FAERS Safety Report 14307932 (Version 4)
Quarter: 2021Q4

REPORT INFORMATION
  Report Type: Other
  Country: CA (occurrence: CA)
  Receive Date: 20171220
  Receipt Date: 20211026
  Transmission Date: 20220303
  Serious: Yes (Hospitalization, Other)
  Sender: FDA-Public Use
  Company Number: CA-APOTEX-2017AP022548

PATIENT
  Age: 54 Year
  Sex: Female
  Weight: 77 kg

DRUGS (35)
  1. CLOPIDOGREL [Suspect]
     Active Substance: CLOPIDOGREL BISULFATE
     Indication: Product used for unknown indication
     Dosage: 75 MILLIGRAM, QD
     Route: 065
  2. ATENOLOL [Suspect]
     Active Substance: ATENOLOL
     Indication: Product used for unknown indication
     Dosage: 50 MILLIGRAM, QD
     Route: 048
  3. CLARITHROMYCIN [Suspect]
     Active Substance: CLARITHROMYCIN
     Indication: Product used for unknown indication
     Dosage: 100 MILLIGRAM, QD
     Route: 065
  4. CLARITHROMYCIN [Suspect]
     Active Substance: CLARITHROMYCIN
     Dosage: 20 MILLIGRAM, QD
     Route: 048
  5. CLARITHROMYCIN [Suspect]
     Active Substance: CLARITHROMYCIN
     Dosage: 40 MILLIGRAM, QD
     Route: 065
  6. CLARITHROMYCIN [Suspect]
     Active Substance: CLARITHROMYCIN
     Dosage: 25 MILLIGRAM, BID
     Route: 065
  7. CLARITHROMYCIN [Suspect]
     Active Substance: CLARITHROMYCIN
     Dosage: 75 MG, QD
     Route: 065
  8. DESLORATADINE [Suspect]
     Active Substance: DESLORATADINE
     Indication: Product used for unknown indication
     Dosage: 5 MILLIGRAM, QD
     Route: 048
  9. DOMPERIDONE [Suspect]
     Active Substance: DOMPERIDONE
     Indication: Product used for unknown indication
     Dosage: 10 MILLIGRAM, QD
     Route: 065
  10. DOMPERIDONE [Suspect]
     Active Substance: DOMPERIDONE
     Dosage: 10 MILLIGRAM, BID
     Route: 065
  11. IMIPRAMINE [Suspect]
     Active Substance: IMIPRAMINE
     Indication: Product used for unknown indication
     Dosage: 25 MILLIGRAM, BID
     Route: 065
  12. IMIPRAMINE [Suspect]
     Active Substance: IMIPRAMINE
     Dosage: 50 MILLIGRAM, BID
     Route: 065
  13. PANTOPRAZOLE [Suspect]
     Active Substance: PANTOPRAZOLE
     Indication: Product used for unknown indication
     Dosage: 40 MILLIGRAM, QD
     Route: 065
  14. ROSUVASTATIN [Suspect]
     Active Substance: ROSUVASTATIN
     Indication: Product used for unknown indication
     Dosage: 20 MILLIGRAM, QD
     Route: 048
  15. ALVESCO [Suspect]
     Active Substance: CICLESONIDE
     Indication: Product used for unknown indication
     Dosage: 400 MICROGRAM
  16. ALVESCO [Suspect]
     Active Substance: CICLESONIDE
     Dosage: 50 MILLIGRAM, QD
  17. ALVESCO [Suspect]
     Active Substance: CICLESONIDE
     Dosage: 400 MILLIGRAM
  18. DETROL LA [Suspect]
     Active Substance: TOLTERODINE TARTRATE
     Indication: Product used for unknown indication
     Dosage: 4 MILLIGRAM, QD
     Route: 065
  19. DETROL LA [Suspect]
     Active Substance: TOLTERODINE TARTRATE
     Dosage: 40 MILLIGRAM, QD
     Route: 065
  20. ECOTRIN [Suspect]
     Active Substance: ASPIRIN
     Indication: Product used for unknown indication
     Dosage: 1 DOSAGE FORM, QD
     Route: 065
  21. EZETIMIBE [Suspect]
     Active Substance: EZETIMIBE
     Indication: Product used for unknown indication
     Dosage: 10 MILLIGRAM, QD
     Route: 048
  22. MAVIK [Suspect]
     Active Substance: TRANDOLAPRIL
     Indication: Product used for unknown indication
     Dosage: 2 MILLIGRAM, QD
     Route: 065
  23. STELARA [Suspect]
     Active Substance: USTEKINUMAB
     Indication: Product used for unknown indication
     Dosage: UNK
     Route: 065
  24. SUCRALFATE [Suspect]
     Active Substance: SUCRALFATE
     Indication: Product used for unknown indication
     Dosage: 1000 MILLIGRAM, QD
     Route: 065
  25. SUCRALFATE [Suspect]
     Active Substance: SUCRALFATE
     Dosage: 10 MILLIGRAM, QD
     Route: 065
  26. SUCRALFATE [Suspect]
     Active Substance: SUCRALFATE
     Dosage: 1000 MILLIGRAM, BID
     Route: 065
  27. AERIUS (DESLORATADINE) [Suspect]
     Active Substance: DESLORATADINE
     Indication: Product used for unknown indication
     Dosage: 5 MILLIGRAM, QD
     Route: 048
  28. AERIUS (DESLORATADINE) [Suspect]
     Active Substance: DESLORATADINE
     Dosage: 50 MILLIGRAM, QD
     Route: 048
  29. AERIUS (DESLORATADINE) [Suspect]
     Active Substance: DESLORATADINE
     Dosage: 10 MILLIGRAM, QD
     Route: 065
  30. USTEKINUMAB [Suspect]
     Active Substance: USTEKINUMAB
     Indication: Product used for unknown indication
     Dosage: UNK
     Route: 065
  31. EBASTINE [Suspect]
     Active Substance: EBASTINE
     Indication: Product used for unknown indication
     Dosage: 5 MILLIGRAM, QD
     Route: 048
  32. EBASTINE [Suspect]
     Active Substance: EBASTINE
     Dosage: 50 MILLIGRAM, QD
     Route: 048
  33. EBASTINE [Suspect]
     Active Substance: EBASTINE
     Dosage: 10 MILLIGRAM, QD
     Route: 065
  34. PANTOPRAZOLE [Suspect]
     Active Substance: PANTOPRAZOLE
     Indication: Product used for unknown indication
     Dosage: 40 MILLIGRAM, QD
     Route: 042
  35. SINGULAIR [Concomitant]
     Active Substance: MONTELUKAST SODIUM
     Indication: Product used for unknown indication
     Dosage: UNK
     Route: 065

REACTIONS (3)
  - Paranoia [Recovered/Resolved]
  - Hallucination, auditory [Recovered/Resolved]
  - Psychotic disorder [Recovered/Resolved]
